FAERS Safety Report 13084600 (Version 1)
Quarter: 2017Q1

REPORT INFORMATION
  Report Type: Spontaneous
  Country: NL (occurrence: NL)
  Receive Date: 20170104
  Receipt Date: 20170104
  Transmission Date: 20170428
  Serious: Yes (Other)
  Sender: FDA-Public Use
  Company Number: NL-TEVA-725621ROM

PATIENT
  Age: 47 Year
  Sex: Male

DRUGS (3)
  1. IBUPROFEN. [Concomitant]
     Active Substance: IBUPROFEN
  2. OXAZEPAM. [Concomitant]
     Active Substance: OXAZEPAM
  3. ZOLPIDEMTARTRAAT PCH TABLET FILMOMHULD 10MG [Suspect]
     Active Substance: ZOLPIDEM TARTRATE
     Dosage: 10 MILLIGRAM DAILY;
     Route: 048
     Dates: start: 2016

REACTIONS (5)
  - Laryngeal inflammation [Recovered/Resolved]
  - Throat tightness [Not Recovered/Not Resolved]
  - Coma [Recovered/Resolved]
  - Throat irritation [Not Recovered/Not Resolved]
  - Dysphagia [Not Recovered/Not Resolved]

NARRATIVE: CASE EVENT DATE: 201610
